FAERS Safety Report 7885867-7 (Version None)
Quarter: 2011Q4

REPORT INFORMATION
  Report Type: 
  Country: None (occurrence: None)
  Receive Date: 20111102
  Receipt Date: 20110630
  Transmission Date: 20120403
  Serious: No
  Sender: FDA-Public Use
  Company Number: US-AMGEN-USASP2011033579

PATIENT
  Age: 63 Year
  Sex: Female
  Weight: 78.005 kg

DRUGS (7)
  1. COUMADIN [Concomitant]
  2. PREDNISONE [Concomitant]
  3. ENBREL [Suspect]
     Indication: PRODUCT USED FOR UNKNOWN INDICATION
     Dosage: 50 MG, QWK
  4. MULTIVITAMIN                       /00097801/ [Concomitant]
  5. FOSAMAX [Concomitant]
  6. FISH OIL [Concomitant]
  7. CALCIUM [Concomitant]

REACTIONS (6)
  - INJECTION SITE ERYTHEMA [None]
  - INJECTION SITE PRURITUS [None]
  - INJECTION SITE SWELLING [None]
  - DRUG INEFFECTIVE [None]
  - PYREXIA [None]
  - INJECTION SITE OEDEMA [None]
